FAERS Safety Report 4288757-4 (Version None)
Quarter: 2004Q1

REPORT INFORMATION
  Report Type: 
  Country: None (occurrence: None)
  Receive Date: 20040205
  Receipt Date: 20040123
  Transmission Date: 20041129
  Serious: Yes (Other)
  Sender: FDA-Public Use
  Company Number: 2003123955

PATIENT
  Age: 90 Year
  Sex: Male
  Weight: 72 kg

DRUGS (3)
  1. MINIPRESS XL [Suspect]
     Indication: BENIGN PROSTATIC HYPERPLASIA
     Dosage: 5 MG (DAILY), ORAL
     Route: 048
     Dates: start: 20031128, end: 20031128
  2. MINIPRESS XL [Suspect]
     Indication: HYPERTENSION
     Dosage: 5 MG (DAILY), ORAL
     Route: 048
     Dates: start: 20031128, end: 20031128
  3. ENALAPRIL MALEATE [Concomitant]

REACTIONS (4)
  - DIZZINESS [None]
  - FALL [None]
  - LOSS OF CONSCIOUSNESS [None]
  - ORTHOSTATIC HYPOTENSION [None]
